FAERS Safety Report 7985042-1 (Version None)
Quarter: 2011Q4

REPORT INFORMATION
  Report Type: 
  Country: None (occurrence: None)
  Receive Date: 20111216
  Receipt Date: 20111122
  Transmission Date: 20120403
  Serious: No
  Sender: FDA-Public Use
  Company Number: US-ALLERGAN-1115333US

PATIENT
  Age: 71 Year
  Sex: Female

DRUGS (1)
  1. LATISSE [Suspect]
     Indication: GROWTH OF EYELASHES
     Dosage: 4 GTT, QHS
     Route: 061
     Dates: start: 20110101

REACTIONS (3)
  - FOREIGN BODY SENSATION IN EYES [None]
  - SCLERAL HYPERAEMIA [None]
  - EXPIRED DRUG ADMINISTERED [None]
